FAERS Safety Report 7182770-5 (Version None)
Quarter: 2010Q4

REPORT INFORMATION
  Report Type: 
  Country: None (occurrence: None)
  Receive Date: 20101221
  Receipt Date: 20100610
  Transmission Date: 20110411
  Serious: No
  Sender: FDA-Public Use
  Company Number: US-AMGEN-TCS412063

PATIENT

DRUGS (7)
  1. ENBREL [Suspect]
     Indication: RHEUMATOID ARTHRITIS
     Dosage: 50 MG, QWK
     Route: 058
     Dates: start: 20090901
  2. LAMOTRIGINE [Concomitant]
     Dosage: 150 MG, QD
  3. ACETAMINOPHEN AND HYDROCODONE BITARTRATE [Concomitant]
  4. IBUPROFEN [Concomitant]
     Dosage: 400 MG, UNK
  5. DIPHENHYDRAMINE HYDROCHLORIDE [Concomitant]
     Dosage: UNK UNK, PRN
  6. ERGOCALCIFEROL [Concomitant]
     Dosage: 50000 IU, QWK
  7. LEFLUNOMIDE [Concomitant]
     Dosage: 20 MG, QD

REACTIONS (4)
  - FALL [None]
  - INCREASED TENDENCY TO BRUISE [None]
  - LIMB INJURY [None]
  - PAIN IN EXTREMITY [None]
